FAERS Safety Report 6136361-5 (Version None)
Quarter: 2009Q1

REPORT INFORMATION
  Report Type: 
  Country: None (occurrence: None)
  Receive Date: 20090330
  Receipt Date: 20090319
  Transmission Date: 20090719
  Serious: Yes (Hospitalization)
  Sender: FDA-Public Use
  Company Number: JP-ABBOTT-07P-087-0357507-00

PATIENT
  Age: 77 Year
  Sex: Male

DRUGS (3)
  1. LEUPLIN SR FOR INJECTION KIT 11.25 MG [Suspect]
     Indication: PROSTATE CANCER STAGE IV
     Route: 058
     Dates: start: 20051228
  2. LEUPLIN SR FOR INJECTION KIT 11.25 MG [Suspect]
     Dates: start: 20051102, end: 20051227
  3. CASODEX [Concomitant]
     Indication: PROSTATE CANCER STAGE IV
     Route: 048
     Dates: start: 20050824

REACTIONS (2)
  - CEREBRAL HAEMORRHAGE [None]
  - HYPERTENSION [None]
